FAERS Safety Report 5646881-5 (Version None)
Quarter: 2008Q1

REPORT INFORMATION
  Report Type: 
  Country: None (occurrence: None)
  Receive Date: 20080131
  Receipt Date: 20071108
  Transmission Date: 20080703
  Serious: Yes (Hospitalization)
  Sender: FDA-Public Use
  Company Number: 163-21880-07120283

PATIENT
  Age: 54 Year
  Sex: Female

DRUGS (3)
  1. REVLIMID [Suspect]
     Indication: MULTIPLE MYELOMA
     Dosage: 10, 5  MG, QD X 21 DAYS, ORAL
     Route: 048
     Dates: start: 20070913, end: 20070101
  2. REVLIMID [Suspect]
     Indication: MULTIPLE MYELOMA
     Dosage: 10, 5  MG, QD X 21 DAYS, ORAL
     Route: 048
     Dates: start: 20071109
  3. WARFARIN SODIUM [Concomitant]

REACTIONS (3)
  - COAGULATION TIME PROLONGED [None]
  - DIZZINESS [None]
  - FALL [None]
